FAERS Safety Report 15934128 (Version 4)
Quarter: 2019Q2

REPORT INFORMATION
  Report Type: Report from Study
  Country: US (occurrence: US)
  Receive Date: 20190207
  Receipt Date: 20190509
  Transmission Date: 20190711
  Serious: Yes (Other)
  Sender: FDA-Public Use
  Company Number: PHEH2019US005502

PATIENT
  Sex: Male

DRUGS (1)
  1. GILENYA [Suspect]
     Active Substance: FINGOLIMOD HYDROCHLORIDE
     Indication: MULTIPLE SCLEROSIS
     Dosage: 0.5 MG, QD
     Route: 048
     Dates: start: 2010

REACTIONS (8)
  - Mobility decreased [Unknown]
  - Memory impairment [Unknown]
  - Gait inability [Unknown]
  - Dysgraphia [Unknown]
  - Fall [Unknown]
  - Multiple sclerosis relapse [Unknown]
  - Stress [Unknown]
  - Malaise [Unknown]
